FAERS Safety Report 4434632-1 (Version None)
Quarter: 2004Q3

REPORT INFORMATION
  Report Type: 
  Country: None (occurrence: None)
  Receive Date: 20040824
  Receipt Date: 20040811
  Transmission Date: 20050211
  Serious: Yes (Hospitalization)
  Sender: FDA-Public Use
  Company Number: US-JNJFOC-20040803759

PATIENT
  Age: 71 Year
  Sex: Female
  Weight: 67.586 kg

DRUGS (3)
  1. REMICADE [Suspect]
     Indication: RHEUMATOID ARTHRITIS
     Dosage: 1 DOSE (S), INTRAVENOUS
     Route: 042
     Dates: start: 20040511
  2. METHOTREXATE SODIUM [Concomitant]
  3. BEXTRA [Concomitant]

REACTIONS (1)
  - KNEE ARTHROPLASTY [None]
